FAERS Safety Report 10681784 (Version 1)
Quarter: 2014Q4

REPORT INFORMATION
  Report Type: Spontaneous
  Country: US (occurrence: None)
  Receive Date: 20141224
  Receipt Date: 20141224
  Transmission Date: 20150529
  Serious: Yes (Hospitalization)
  Sender: FDA-Public Use
  Company Number: US-001231

PATIENT
  Sex: Male

DRUGS (2)
  1. SOLUTIONS FOR PARENTERAL NUTRITION [Concomitant]
     Active Substance: AMINO ACIDS\DEXTROSE\ELECTROLYTES NOS
  2. GATTEX [Suspect]
     Active Substance: TEDUGLUTIDE\WATER
     Indication: SHORT-BOWEL SYNDROME
     Dosage: DF
     Route: 058
     Dates: end: 20140901

REACTIONS (11)
  - Swelling [None]
  - Fistula [None]
  - Bacterial infection [None]
  - Cough [None]
  - Oropharyngeal pain [None]
  - Influenza like illness [None]
  - Stoma complication [None]
  - Headache [None]
  - Fungal infection [None]
  - Abdominal pain [None]
  - Back pain [None]

NARRATIVE: CASE EVENT DATE: 2014
